FAERS Safety Report 8829184 (Version 1)
Quarter: 2012Q4

REPORT INFORMATION
  Report Type: 
  Country: IT (occurrence: IT)
  Receive Date: 20121008
  Receipt Date: 20121008
  Transmission Date: 20130627
  Serious: Yes (Hospitalization)
  Sender: FDA-Public Use
  Company Number: PHHY2012IT087233

PATIENT
  Age: 76 Year
  Sex: Female

DRUGS (3)
  1. OXALIPLATIN SANDOZ [Suspect]
     Indication: LUNG NEOPLASM MALIGNANT
     Dosage: 186 mg, total dose
     Route: 042
     Dates: start: 20120927
  2. ZOFRAN [Concomitant]
  3. SOLDESAM [Concomitant]

REACTIONS (2)
  - Bronchostenosis [Recovered/Resolved]
  - Dyspnoea [Recovered/Resolved]
